FAERS Safety Report 7430492-5 (Version None)
Quarter: 2011Q2

REPORT INFORMATION
  Report Type: 
  Country: None (occurrence: None)
  Receive Date: 20110421
  Receipt Date: 20101029
  Transmission Date: 20111010
  Serious: No
  Sender: FDA-Public Use
  Company Number: US-ASTRAZENECA-2010SE51401

PATIENT
  Age: 72 Year
  Sex: Female
  Weight: 65.8 kg

DRUGS (5)
  1. METOPROLOL TARTRATE [Suspect]
     Route: 048
     Dates: start: 20090101
  2. TOPROL-XL [Suspect]
     Route: 048
     Dates: start: 19950101, end: 20080101
  3. ALPRAZOLAM [Suspect]
     Indication: ANXIETY
     Route: 065
  4. TOPROL-XL [Suspect]
     Route: 048
     Dates: start: 20090101
  5. ALPRAZOLAM [Suspect]
     Indication: PANIC ATTACK
     Route: 065

REACTIONS (6)
  - PARAESTHESIA [None]
  - URTICARIA [None]
  - HYPOTENSION [None]
  - HEART RATE DECREASED [None]
  - DYSPNOEA [None]
  - MUSCULAR WEAKNESS [None]
